FAERS Safety Report 14022561 (Version 2)
Quarter: 2017Q4

REPORT INFORMATION
  Report Type: Spontaneous
  Country: FR (occurrence: FR)
  Receive Date: 20170929
  Receipt Date: 20171006
  Transmission Date: 20180321
  Serious: Yes (Other)
  Sender: FDA-Public Use
  Company Number: FR-MERCK KGAA-2028172

PATIENT
  Age: 64 Year
  Sex: Female

DRUGS (8)
  1. NOVOTHYROX [Suspect]
     Active Substance: LEVOTHYROXINE SODIUM
     Indication: THYROIDECTOMY
     Route: 048
     Dates: start: 20170511
  2. TRIMEBUTINE [Concomitant]
     Active Substance: TRIMEBUTINE
  3. SERESTA [Concomitant]
     Active Substance: OXAZEPAM
  4. SMECTA [Concomitant]
     Active Substance: MONTMORILLONITE
  5. ULTRA LEVURE [Concomitant]
     Active Substance: SACCHAROMYCES CEREVISIAE
  6. PARACETAMOL [Concomitant]
     Active Substance: ACETAMINOPHEN
  7. PANFUREX [Concomitant]
     Active Substance: NIFUROXAZIDE
  8. CRESTOR [Concomitant]
     Active Substance: ROSUVASTATIN CALCIUM

REACTIONS (4)
  - Migraine [Not Recovered/Not Resolved]
  - Weight increased [Not Recovered/Not Resolved]
  - Diarrhoea [Not Recovered/Not Resolved]
  - Abdominal pain [Not Recovered/Not Resolved]

NARRATIVE: CASE EVENT DATE: 20170811
